FAERS Safety Report 22093243 (Version 2)
Quarter: 2023Q1

REPORT INFORMATION
  Report Type: Spontaneous
  Country: US (occurrence: US)
  Receive Date: 20230314
  Receipt Date: 20230331
  Transmission Date: 20230417
  Serious: No
  Sender: FDA-Public Use
  Company Number: US-Calliditas-2023CAL00232

PATIENT
  Age: 71 Year
  Sex: Female
  Weight: 77 kg

DRUGS (13)
  1. TARPEYO [Suspect]
     Active Substance: BUDESONIDE
     Indication: Haematuria
     Dosage: 16 MG (4 MG CAPSULES) ONCE DAILY
     Route: 048
     Dates: start: 20230107
  2. LASIX [Concomitant]
     Active Substance: FUROSEMIDE
     Indication: Joint swelling
  3. BENLYSTA [Concomitant]
     Active Substance: BELIMUMAB
     Indication: Systemic lupus erythematosus
  4. CRESTOR [Concomitant]
     Active Substance: ROSUVASTATIN CALCIUM
  5. WARFARIN [Concomitant]
     Active Substance: WARFARIN
  6. LEVOTHYROXINE [Concomitant]
     Active Substance: LEVOTHYROXINE
  7. AMIODARONE [Concomitant]
     Active Substance: AMIODARONE
  8. AMLODIPINE [Concomitant]
     Active Substance: AMLODIPINE BESYLATE
  9. VITAMIN D3 [Concomitant]
     Active Substance: CHOLECALCIFEROL
  10. PEPCID [Concomitant]
     Active Substance: FAMOTIDINE
  11. POTASSIUM CHLORIDE [Concomitant]
     Active Substance: POTASSIUM CHLORIDE
  12. NITROSTAT [Concomitant]
     Active Substance: NITROGLYCERIN
  13. LISINOPRIL [Concomitant]
     Active Substance: LISINOPRIL
     Dates: end: 202303

REACTIONS (4)
  - Joint swelling [Recovering/Resolving]
  - Cushingoid [Recovering/Resolving]
  - Flushing [Recovered/Resolved]
  - Morbid thoughts [Recovered/Resolved]

NARRATIVE: CASE EVENT DATE: 20230201
